FAERS Safety Report 23183331 (Version 1)
Quarter: 2023Q4

REPORT INFORMATION
  Report Type: Spontaneous
  Country: US (occurrence: US)
  Receive Date: 20231114
  Receipt Date: 20231114
  Transmission Date: 20240110
  Serious: No
  Sender: FDA-Public Use
  Company Number: US-OptiNose US, Inc-2023OPT000082

PATIENT
  Age: 58 Year
  Sex: Female

DRUGS (1)
  1. XHANCE [Suspect]
     Active Substance: FLUTICASONE PROPIONATE
     Indication: Product used for unknown indication
     Route: 045
     Dates: start: 20221112, end: 20230315

REACTIONS (4)
  - Aphonia [Recovered/Resolved]
  - Thermal burn [Recovered/Resolved]
  - Nasal crusting [Recovered/Resolved]
  - Intraocular pressure increased [Recovered/Resolved]

NARRATIVE: CASE EVENT DATE: 20221215
